FAERS Safety Report 6395448-2 (Version None)
Quarter: 2009Q4

REPORT INFORMATION
  Report Type: 
  Country: None (occurrence: None)
  Receive Date: 20091009
  Receipt Date: 20090930
  Transmission Date: 20100525
  Serious: Yes (Hospitalization, Other)
  Sender: FDA-Public Use
  Company Number: JP-PFIZER INC-2009277526

PATIENT
  Age: 80 Year

DRUGS (1)
  1. TRIAZOLAM [Suspect]
     Indication: INSOMNIA
     Dosage: 0.125 - 0.25 MG, EVERY DAY
     Route: 048

REACTIONS (3)
  - DELIRIUM [None]
  - DRUG DEPENDENCE [None]
  - WITHDRAWAL SYNDROME [None]
